FAERS Safety Report 9222933 (Version 1)
Quarter: 2013Q2

REPORT INFORMATION
  Report Type: Report from Study
  Country: CA (occurrence: CA)
  Receive Date: 20130410
  Receipt Date: 20130410
  Transmission Date: 20140414
  Serious: Yes (Hospitalization)
  Sender: FDA-Public Use
  Company Number: CA-JNJFOC-20130402487

PATIENT
  Age: 61 Year
  Sex: Female
  Weight: 136.08 kg

DRUGS (1)
  1. STELARA [Suspect]
     Indication: PSORIASIS
     Route: 058
     Dates: start: 20120209

REACTIONS (2)
  - Ear infection [Unknown]
  - Oropharyngeal pain [Unknown]
